FAERS Safety Report 7510571-4 (Version None)
Quarter: 2011Q2

REPORT INFORMATION
  Report Type: 
  Country: None (occurrence: None)
  Receive Date: 20110530
  Receipt Date: 20110519
  Transmission Date: 20111010
  Serious: Yes (Hospitalization)
  Sender: FDA-Public Use
  Company Number: US-BIOGENIDEC-2011BI019142

PATIENT
  Age: 70 Year
  Sex: Female

DRUGS (3)
  1. AVONEX [Suspect]
     Indication: MULTIPLE SCLEROSIS
     Route: 030
     Dates: start: 20110317
  2. AVONEX [Suspect]
     Route: 030
     Dates: start: 20081014, end: 20101227
  3. AVONEX [Suspect]
     Route: 030
     Dates: start: 20020130, end: 20071130

REACTIONS (2)
  - ENTERITIS INFECTIOUS [None]
  - ABASIA [None]
